FAERS Safety Report 7306840-3 (Version None)
Quarter: 2011Q1

REPORT INFORMATION
  Report Type: 
  Country: None (occurrence: None)
  Receive Date: 20110223
  Receipt Date: 20110208
  Transmission Date: 20110831
  Serious: Yes (Other)
  Sender: FDA-Public Use
  Company Number: US-CELGENEUS-163-20785-11022213

PATIENT
  Age: 82 Year
  Sex: Male
  Weight: 66.284 kg

DRUGS (2)
  1. THALOMID [Suspect]
     Route: 048
  2. DEXAMETHASONE [Concomitant]
     Route: 065

REACTIONS (1)
  - ADVERSE EVENT [None]
